FAERS Safety Report 5587553-5 (Version None)
Quarter: 2008Q1

REPORT INFORMATION
  Report Type: 
  Country: None (occurrence: None)
  Receive Date: 20080107
  Receipt Date: 20061018
  Transmission Date: 20080703
  Serious: Yes (Other)
  Sender: FDA-Public Use
  Company Number: 2006VX002010

PATIENT
  Age: 46 Year
  Sex: Female
  Weight: 85 kg

DRUGS (1)
  1. LIBRAX [Suspect]
     Dosage: 1 DF; QID; PO
     Route: 048

REACTIONS (1)
  - URINARY RETENTION [None]
